FAERS Safety Report 15393848 (Version 3)
Quarter: 2018Q4

REPORT INFORMATION
  Report Type: Spontaneous
  Country: US (occurrence: US)
  Receive Date: 20180917
  Receipt Date: 20181227
  Transmission Date: 20190204
  Serious: Yes (Hospitalization, Other)
  Sender: FDA-Public Use
  Company Number: US-VIFOR (INTERNATIONAL) INC.-VIT-2018-09073

PATIENT
  Sex: Male

DRUGS (18)
  1. VENOFER [Concomitant]
     Active Substance: IRON SUCROSE
     Indication: PRODUCT USED FOR UNKNOWN INDICATION
  2. MIRCERA [Concomitant]
     Active Substance: METHOXY POLYETHYLENE GLYCOL-EPOETIN BETA
     Indication: PRODUCT USED FOR UNKNOWN INDICATION
  3. VELTASSA [Suspect]
     Active Substance: PATIROMER
     Route: 048
     Dates: start: 2018
  4. ASPIRIN LOW DOSE [Concomitant]
     Active Substance: ASPIRIN
  5. LEVOTHYROXINE. [Concomitant]
     Active Substance: LEVOTHYROXINE
  6. VITAMIN D [Concomitant]
     Active Substance: CHOLECALCIFEROL
  7. LORAZEPAM. [Concomitant]
     Active Substance: LORAZEPAM
  8. NEPRO [Concomitant]
     Active Substance: DIETARY SUPPLEMENT
  9. MIDODRINE HCL [Concomitant]
     Active Substance: MIDODRINE HYDROCHLORIDE
  10. CALCIUM ACETATE. [Concomitant]
     Active Substance: CALCIUM ACETATE
  11. SIMVASTATIN. [Concomitant]
     Active Substance: SIMVASTATIN
  12. VELTASSA [Suspect]
     Active Substance: PATIROMER
     Indication: HYPERKALAEMIA
     Route: 048
     Dates: start: 20180426, end: 2018
  13. MEGACE ORAL [Concomitant]
     Route: 048
  14. TAMSULOSIN HCL [Concomitant]
     Active Substance: TAMSULOSIN HYDROCHLORIDE
  15. TRAVATAN Z [Concomitant]
     Active Substance: TRAVOPROST
  16. DORZOLAMIDE HCL [Concomitant]
     Active Substance: DORZOLAMIDE HYDROCHLORIDE
  17. LIQUACEL [Concomitant]
  18. ACETAMINOPHEN. [Concomitant]
     Active Substance: ACETAMINOPHEN

REACTIONS (4)
  - Product dose omission [Unknown]
  - Malaise [Unknown]
  - Haemorrhage [Unknown]
  - Dialysis [Unknown]

NARRATIVE: CASE EVENT DATE: 2018
